FAERS Safety Report 5519900-4 (Version None)
Quarter: 2007Q4

REPORT INFORMATION
  Report Type: 
  Country: None (occurrence: None)
  Receive Date: 20071116
  Receipt Date: 20071016
  Transmission Date: 20080405
  Serious: No
  Sender: FDA-Public Use
  Company Number: A0688005A

PATIENT
  Age: 83 Year
  Sex: Female

DRUGS (6)
  1. COREG CR [Suspect]
     Indication: HYPERTENSION
     Dosage: 80MG PER DAY
     Route: 048
     Dates: start: 20070924
  2. ALTACE [Concomitant]
  3. AMIODARONE [Concomitant]
  4. SYNTHROID [Concomitant]
  5. AMARYL [Concomitant]
  6. FLONASE [Concomitant]

REACTIONS (3)
  - DRUG INEFFECTIVE [None]
  - FATIGUE [None]
  - POLLAKIURIA [None]
